FAERS Safety Report 6089495-8 (Version None)
Quarter: 2009Q1

REPORT INFORMATION
  Report Type: 
  Country: None (occurrence: None)
  Receive Date: 20090224
  Receipt Date: 20090219
  Transmission Date: 20090719
  Serious: Yes (Hospitalization)
  Sender: FDA-Public Use
  Company Number: JP-BRISTOL-MYERS SQUIBB COMPANY-14516520

PATIENT
  Age: 77 Year
  Sex: Male

DRUGS (5)
  1. PARAPLATIN [Suspect]
     Indication: SMALL CELL LUNG CANCER STAGE UNSPECIFIED
     Dosage: 1 DF = AUC 4
     Route: 041
  2. VEPESID [Suspect]
     Indication: SMALL CELL LUNG CANCER STAGE UNSPECIFIED
     Route: 041
  3. RADIOTHERAPY [Suspect]
     Indication: SMALL CELL LUNG CANCER STAGE UNSPECIFIED
     Dosage: CHEST IRRADIATION BY 2GY PER THERAPY SINCE DAY6.TOTALLY 40 GY RADIOTHERAPY PERFORMED.
  4. TOPOTECIN [Concomitant]
     Indication: SMALL CELL LUNG CANCER STAGE UNSPECIFIED
     Route: 041
  5. ANTIBIOTICS [Concomitant]

REACTIONS (4)
  - CARDIAC FAILURE CONGESTIVE [None]
  - DEPRESSION [None]
  - FEBRILE NEUTROPENIA [None]
  - LEUKOPENIA [None]
